FAERS Safety Report 7491558-7 (Version None)
Quarter: 2011Q2

REPORT INFORMATION
  Report Type: 
  Country: None (occurrence: None)
  Receive Date: 20110519
  Receipt Date: 20110516
  Transmission Date: 20111010
  Serious: Yes (Death, Other)
  Sender: FDA-Public Use
  Company Number: PHHY2011FI06317

PATIENT
  Sex: Male

DRUGS (11)
  1. PANADOL [Concomitant]
     Dosage: 1 DF X 1-3
     Route: 048
  2. ZANIDIP [Concomitant]
     Dosage: 1 DF, QD
  3. LEVEMIR [Concomitant]
     Dosage: 100 U/ML
  4. DINIT [Concomitant]
     Dosage: 1-3 TIMES
  5. BISOPROLOL FUMARATE [Concomitant]
     Dosage: 1 DF, QD
     Route: 048
  6. SIMVASTATIN [Concomitant]
     Dosage: 1 DF, QD
     Route: 048
  7. SEPRAM [Concomitant]
     Dosage: 1 DF, QD
     Route: 048
  8. METFORMIN HCL [Suspect]
     Indication: DIABETES MELLITUS
     Dosage: 2+3 TABLETS A DAY
     Route: 048
  9. LOSARTAN POTASSIUM AND HYDROCHLOROTHIAZIDE [Concomitant]
     Dosage: 1 DF, QD
     Route: 048
  10. PRIMASPAN [Concomitant]
     Dosage: 1 DF, QD
     Route: 048
  11. MIRTAZAPINE [Concomitant]
     Dosage: 1 DF, QD
     Route: 048

REACTIONS (7)
  - DIABETES MELLITUS [None]
  - DYSPNOEA [None]
  - HEPATIC CIRRHOSIS [None]
  - CARDIAC ARREST [None]
  - CHEST PAIN [None]
  - LACTIC ACIDOSIS [None]
  - HEPATIC STEATOSIS [None]
